FAERS Safety Report 8838832 (Version 1)
Quarter: 2012Q4

REPORT INFORMATION
  Report Type: Spontaneous
  Country: US (occurrence: None)
  Receive Date: 20121011
  Receipt Date: 20121011
  Transmission Date: 20130627
  Serious: Yes (Hospitalization, Disabling)
  Sender: FDA-Public Use
  Company Number: None

PATIENT
  Age: 76 Year
  Sex: Male
  Weight: 86.18 kg

DRUGS (1)
  1. VOLTAREN [Suspect]
     Dosage: 75 mg 2/day with meal po
     Route: 048
     Dates: start: 20120315, end: 20120829

REACTIONS (3)
  - Renal failure acute [None]
  - Renal disorder [None]
  - Muscular weakness [None]
